FAERS Safety Report 18185902 (Version 6)
Quarter: 2021Q1

REPORT INFORMATION
  Report Type: Other
  Country: CA (occurrence: CA)
  Receive Date: 20200824
  Receipt Date: 20210312
  Transmission Date: 20210419
  Serious: Yes (Other)
  Sender: FDA-Public Use
  Company Number: CA-ROCHE-2522413

PATIENT
  Age: 70 Year
  Sex: Male
  Weight: 86.6 kg

DRUGS (20)
  1. ESBRIET [Suspect]
     Active Substance: PIRFENIDONE
     Indication: IDIOPATHIC PULMONARY FIBROSIS
     Route: 048
     Dates: start: 20200409, end: 202005
  2. ESBRIET [Suspect]
     Active Substance: PIRFENIDONE
     Indication: IDIOPATHIC PULMONARY FIBROSIS
     Route: 048
     Dates: start: 20191107, end: 2019
  3. PANTOPRAZOLE [Concomitant]
     Active Substance: PANTOPRAZOLE
  4. ASA [Concomitant]
     Active Substance: ASPIRIN
  5. CITALOPRAM [Concomitant]
     Active Substance: CITALOPRAM HYDROBROMIDE
  6. ESBRIET [Suspect]
     Active Substance: PIRFENIDONE
     Route: 048
     Dates: start: 20200601, end: 2020
  7. ESBRIET [Suspect]
     Active Substance: PIRFENIDONE
     Dosage: TREATMENT SUSPENDED
     Route: 048
     Dates: start: 202003, end: 202004
  8. METOPROLOL. [Concomitant]
     Active Substance: METOPROLOL
  9. ESBRIET [Suspect]
     Active Substance: PIRFENIDONE
     Dosage: 267 MG X 7 TAB
     Route: 048
     Dates: start: 202007, end: 202007
  10. ESBRIET [Suspect]
     Active Substance: PIRFENIDONE
     Dosage: 267 MG X 7 TAB/ PER DAY?ON SUSPENSION
     Route: 048
     Dates: start: 20200810, end: 2020
  11. ESBRIET [Suspect]
     Active Substance: PIRFENIDONE
     Route: 048
     Dates: start: 20201112
  12. ROSUVASTATIN. [Concomitant]
     Active Substance: ROSUVASTATIN
  13. ESBRIET [Suspect]
     Active Substance: PIRFENIDONE
     Route: 048
     Dates: start: 2019, end: 2019
  14. GLICLAZIDE [Concomitant]
     Active Substance: GLICLAZIDE
  15. ESBRIET [Suspect]
     Active Substance: PIRFENIDONE
     Dosage: 267 MG X 6 TAB/ PER DAY
     Route: 048
     Dates: start: 202007, end: 202008
  16. ESBRIET [Suspect]
     Active Substance: PIRFENIDONE
     Route: 048
     Dates: start: 2019, end: 202003
  17. ESBRIET [Suspect]
     Active Substance: PIRFENIDONE
     Route: 048
     Dates: start: 202005, end: 202005
  18. MORPHINE [Suspect]
     Active Substance: MORPHINE
     Indication: BACK PAIN
     Route: 065
  19. METFORMIN [Concomitant]
     Active Substance: METFORMIN HYDROCHLORIDE
  20. RAMIPRIL. [Concomitant]
     Active Substance: RAMIPRIL

REACTIONS (15)
  - Fatigue [Unknown]
  - Pneumonia [Unknown]
  - Cough [Unknown]
  - Vomiting [Unknown]
  - Muscle strain [Unknown]
  - Nausea [Unknown]
  - Flatulence [Unknown]
  - Pyrexia [Unknown]
  - Decreased appetite [Unknown]
  - Diarrhoea [Unknown]
  - Constipation [Recovered/Resolved]
  - Hypoacusis [Unknown]
  - Dyspepsia [Unknown]
  - Abdominal discomfort [Unknown]
  - Weight decreased [Not Recovered/Not Resolved]

NARRATIVE: CASE EVENT DATE: 2020
